FAERS Safety Report 12799818 (Version 1)
Quarter: 2016Q3

REPORT INFORMATION
  Report Type: Spontaneous
  Country: FR (occurrence: FR)
  Receive Date: 20160930
  Receipt Date: 20160930
  Transmission Date: 20161109
  Serious: No
  Sender: FDA-Public Use
  Company Number: FR-TOLMAR, INC.-2015FR008148

PATIENT
  Age: 73 Year
  Sex: Male

DRUGS (4)
  1. VESICARE [Suspect]
     Active Substance: SOLIFENACIN SUCCINATE
     Indication: PRODUCT USED FOR UNKNOWN INDICATION
     Dosage: UNK
     Route: 065
  2. CASODEX [Concomitant]
     Active Substance: BICALUTAMIDE
  3. ELIGARD [Suspect]
     Active Substance: LEUPROLIDE ACETATE
     Indication: PRODUCT USED FOR UNKNOWN INDICATION
     Dosage: UNK
     Route: 065
  4. TAMSULOSIN [Concomitant]
     Active Substance: TAMSULOSIN

REACTIONS (3)
  - Injection site mass [Unknown]
  - Wrong technique in product usage process [Unknown]
  - Blood testosterone abnormal [Unknown]

NARRATIVE: CASE EVENT DATE: 20150715
